FAERS Safety Report 21006449 (Version 1)
Quarter: 2022Q2

REPORT INFORMATION
  Report Type: Spontaneous
  Country: US (occurrence: US)
  Receive Date: 20220624
  Receipt Date: 20220624
  Transmission Date: 20220721
  Serious: No
  Sender: FDA-Public Use
  Company Number: US-Amarin Pharma, Inc.-2022AMR001045

PATIENT
  Sex: Female

DRUGS (13)
  1. JANUMET [Concomitant]
     Active Substance: METFORMIN HYDROCHLORIDE\SITAGLIPTIN PHOSPHATE
     Indication: Diabetes mellitus
  2. GLIPIZIDE [Concomitant]
     Active Substance: GLIPIZIDE
     Indication: Diabetes mellitus
     Dosage: HALF TABLET IN THE MORNING AND HALF TABLET IN THE EVENING
  3. ASPIRIN [Concomitant]
     Active Substance: ASPIRIN
     Indication: Arthritis
  4. LOTEMAX [Concomitant]
     Active Substance: LOTEPREDNOL ETABONATE
     Indication: Product used for unknown indication
     Dosage: ONE DROP EACH EYE EVERY MORNING
     Route: 047
  5. TIMOLOL [Concomitant]
     Active Substance: TIMOLOL
     Indication: Intraocular pressure increased
     Dosage: ONE DROP EACH EYE TWICE DAILY
     Route: 031
  6. VITAMIN D3 [Concomitant]
     Active Substance: CHOLECALCIFEROL
     Dosage: TWO DAILY IN THE MORNING
  7. PHILLIPS COLON HEALTH [Concomitant]
     Indication: Product used for unknown indication
     Dosage: TAKES EVERY MONDAY, WEDNESDAY AND FRIDAY
  8. HERBALS\TURMERIC [Concomitant]
     Active Substance: HERBALS\TURMERIC
     Indication: Product used for unknown indication
     Dosage: TAKES MONDAY THROUGH FRIDAY
  9. calcium citracal slow release [Concomitant]
     Indication: Product used for unknown indication
     Dosage: ONE IN THE MORNING AND ONE IN THE EVENING, ALTERNATES BETWEEN OVER 50 WITH CALCIUM AND UNDER 50 WITH
  10. estrogen vaginal cream [Concomitant]
     Indication: Product used for unknown indication
     Route: 067
  11. Bergamot with resveratrol [Concomitant]
     Indication: Lipids
  12. VASCEPA [Suspect]
     Active Substance: ICOSAPENT ETHYL
     Indication: Lipids increased
  13. TYLENOL ARTHRITIS PAIN [Concomitant]
     Active Substance: ACETAMINOPHEN
     Indication: Arthralgia
     Dosage: TWO AT BEDTIME

REACTIONS (8)
  - Gastrointestinal disorder [Recovered/Resolved]
  - Gastrointestinal sounds abnormal [Recovered/Resolved]
  - Diarrhoea [Recovered/Resolved]
  - Myalgia [Recovered/Resolved]
  - Pain in extremity [Not Recovered/Not Resolved]
  - Arthralgia [Not Recovered/Not Resolved]
  - Off label use [Recovered/Resolved]
  - Intentional dose omission [Recovered/Resolved]
